FAERS Safety Report 5892702-5 (Version None)
Quarter: 2008Q3

REPORT INFORMATION
  Report Type: 
  Country: None (occurrence: None)
  Receive Date: 20080923
  Receipt Date: 20080917
  Transmission Date: 20090109
  Serious: Yes (Death, Other)
  Sender: FDA-Public Use
  Company Number: PHBS2008TH05740

PATIENT
  Age: 48 Year
  Sex: Male

DRUGS (5)
  1. CYCLOSPORINE [Suspect]
     Indication: RENAL TRANSPLANT
     Dosage: UNK
     Dates: start: 19990101
  2. PREDNISOLONE [Concomitant]
     Indication: RENAL TRANSPLANT
     Dosage: UNK
     Dates: start: 19990101
  3. ORTHOCLONE OKT3 [Concomitant]
     Indication: KIDNEY TRANSPLANT REJECTION
  4. METHYLPREDNISOLONE [Concomitant]
     Indication: TRANSPLANT REJECTION
     Dosage: UNK
     Dates: start: 20041201
  5. ANTI-THYMOCYTE GLOBULIN NOS [Concomitant]
     Indication: TRANSPLANT REJECTION
     Dosage: UNK
     Dates: start: 20041201

REACTIONS (19)
  - ABSCESS DRAINAGE [None]
  - AGITATION [None]
  - BRADYCARDIA [None]
  - BRAIN ABSCESS [None]
  - BRAIN OEDEMA [None]
  - COGNITIVE DISORDER [None]
  - COMA [None]
  - CONFUSIONAL STATE [None]
  - DYSARTHRIA [None]
  - EXTENSOR PLANTAR RESPONSE [None]
  - HAEMATOCRIT DECREASED [None]
  - HEADACHE [None]
  - HEMIPARESIS [None]
  - HYPOTENSION [None]
  - MECHANICAL VENTILATION [None]
  - NECROSIS [None]
  - PSEUDALLESCHERIA INFECTION [None]
  - PYREXIA [None]
  - TRANSPLANT REJECTION [None]
